FAERS Safety Report 18871370 (Version 1)
Quarter: 2021Q1

REPORT INFORMATION
  Report Type: Spontaneous
  Country: TR (occurrence: TR)
  Receive Date: 20210210
  Receipt Date: 20210210
  Transmission Date: 20210420
  Serious: Yes (Other)
  Sender: FDA-Public Use
  Company Number: NVSC2021TR027361

PATIENT
  Age: 71 Year
  Sex: Female

DRUGS (5)
  1. FULVESTRANT. [Suspect]
     Active Substance: FULVESTRANT
     Dosage: 500 MG
     Route: 065
  2. RIBOCICLIB. [Suspect]
     Active Substance: RIBOCICLIB
     Dosage: 400 MG, QD
     Route: 065
  3. FULVESTRANT. [Suspect]
     Active Substance: FULVESTRANT
     Indication: METASTASES TO BONE
     Dosage: 500 MG
     Route: 065
     Dates: start: 20190826
  4. RIBOCICLIB. [Suspect]
     Active Substance: RIBOCICLIB
     Indication: METASTASES TO BONE
     Dosage: 600 MG, QD
     Route: 065
     Dates: start: 20190826
  5. ZOLEDRONIC ACID [Suspect]
     Active Substance: ZOLEDRONIC ACID
     Indication: METASTASES TO BONE
     Dosage: UNK
     Route: 065
     Dates: start: 20190826

REACTIONS (11)
  - Leukopenia [Unknown]
  - Diarrhoea [Recovering/Resolving]
  - Mobility decreased [Unknown]
  - Soft tissue infection [Unknown]
  - Thrombocytopenia [Unknown]
  - Nausea [Recovering/Resolving]
  - Arthralgia [Recovering/Resolving]
  - Anaemia [Unknown]
  - Neutropenia [Unknown]
  - Decreased appetite [Recovering/Resolving]
  - Asthenia [Recovering/Resolving]

NARRATIVE: CASE EVENT DATE: 202005
